FAERS Safety Report 9286782 (Version 1)
Quarter: 2013Q2

REPORT INFORMATION
  Report Type: Spontaneous
  Country: ES (occurrence: None)
  Receive Date: 20130508
  Receipt Date: 20130508
  Transmission Date: 20140414
  Serious: Yes (Disabling)
  Sender: FDA-Public Use
  Company Number: 1693092

PATIENT
  Age: 39 Year
  Sex: Female

DRUGS (3)
  1. PACLITAXEL [Suspect]
     Indication: METASTASES TO LYMPH NODES
     Dosage: 80 MG/M 2 MILLIGRAM(S)/SQ. METER ( CYCLICAL ) INTRAVENOUS(NOT OTHERWISE SPECIFIED)
     Route: 042
  2. PACLITAXEL [Suspect]
     Indication: METASTASES TO BONE
     Dosage: 80 MG/M 2 MILLIGRAM(S)/SQ. METER ( CYCLICAL ) INTRAVENOUS(NOT OTHERWISE SPECIFIED)
     Route: 042
  3. GEMCITABINE [Concomitant]

REACTIONS (1)
  - Cystoid macular oedema [None]
